FAERS Safety Report 6153888-0 (Version None)
Quarter: 2009Q2

REPORT INFORMATION
  Report Type: 
  Country: None (occurrence: None)
  Receive Date: 20090414
  Receipt Date: 20090409
  Transmission Date: 20091009
  Serious: Yes (Hospitalization)
  Sender: FDA-Public Use
  Company Number: JP-JNJFOC-20090400084

PATIENT
  Age: 73 Year
  Sex: Male

DRUGS (2)
  1. RISPERDAL [Suspect]
     Indication: DELIRIUM
     Route: 048
  2. RHYTHMY [Suspect]
     Indication: INSOMNIA
     Route: 048

REACTIONS (3)
  - HYPERCAPNIA [None]
  - OFF LABEL USE [None]
  - RESPIRATORY DEPRESSION [None]
